FAERS Safety Report 8998383 (Version 2)
Quarter: 2013Q1

REPORT INFORMATION
  Report Type: Report from Study
  Country: NL (occurrence: NL)
  Receive Date: 20130103
  Receipt Date: 20130124
  Transmission Date: 20140127
  Serious: Yes (Death, Hospitalization)
  Sender: FDA-Public Use
  Company Number: NL-ROCHE-1174547

PATIENT
  Age: 65 Year
  Sex: Female
  Weight: 68.5 kg

DRUGS (7)
  1. BEVACIZUMAB [Suspect]
     Indication: NEOPLASM MALIGNANT
     Route: 042
     Dates: start: 20100608
  2. BEVACIZUMAB [Suspect]
     Dosage: LAST DOSE PRIOR TO SAE WAS 06/DEC/2012
     Route: 042
     Dates: start: 20121025, end: 20121228
  3. PEMETREXED [Suspect]
     Indication: NEOPLASM MALIGNANT
     Route: 042
     Dates: start: 20100608
  4. PEMETREXED [Suspect]
     Dosage: AST DOSE PRIOR TO SAE WAS 06/DEC/2012
     Route: 042
     Dates: start: 20121025, end: 20121228
  5. FOLIC ACID [Concomitant]
     Route: 065
     Dates: start: 20100527
  6. VITAMIN B12 [Concomitant]
     Route: 065
     Dates: start: 20100527
  7. PARACETAMOL [Concomitant]
     Route: 065
     Dates: start: 20100527

REACTIONS (2)
  - Vomiting [Fatal]
  - Nausea [Recovering/Resolving]
